APPROVED DRUG PRODUCT: LUBIPROSTONE
Active Ingredient: LUBIPROSTONE
Strength: 24MCG
Dosage Form/Route: CAPSULE;ORAL
Application: A214131 | Product #002 | TE Code: AB
Applicant: ZYDUS PHARMACEUTICALS USA INC
Approved: Mar 23, 2023 | RLD: No | RS: No | Type: RX